FAERS Safety Report 7657298-6 (Version None)
Quarter: 2011Q3

REPORT INFORMATION
  Report Type: 
  Country: None (occurrence: None)
  Receive Date: 20110804
  Receipt Date: 20110726
  Transmission Date: 20111222
  Serious: Yes (Other)
  Sender: FDA-Public Use
  Company Number: PHHY2011US26531

PATIENT
  Sex: Female

DRUGS (7)
  1. PREMPRO [Concomitant]
     Indication: HORMONE REPLACEMENT THERAPY
     Dosage: 0.3MG/1.5 MG DAILY
     Dates: start: 20080101
  2. JUVEDERM INJECTION [Suspect]
     Dosage: UNK UKN, OT
  3. ACTONEL [Concomitant]
     Indication: OSTEOPOROSIS
     Dosage: 150 MG, MONTHLY
  4. CYCLOBENZAPRINE [Concomitant]
     Dosage: UNK UKN, UNK
  5. CEPHALEXIN [Concomitant]
     Dosage: UNK UKN, UNK
  6. GILENYA [Suspect]
     Indication: RELAPSING-REMITTING MULTIPLE SCLEROSIS
     Dosage: 0.5 MG, QD
     Route: 048
     Dates: start: 20101109, end: 20110330
  7. VITAMIN D [Concomitant]
     Dosage: UNK UKN, UNK

REACTIONS (8)
  - VULVAL DISORDER [None]
  - ORAL DISORDER [None]
  - BRONCHITIS [None]
  - LYMPHOCYTE COUNT DECREASED [None]
  - WHITE BLOOD CELL COUNT DECREASED [None]
  - HERPES SIMPLEX [None]
  - LIP BLISTER [None]
  - UPPER RESPIRATORY TRACT INFECTION [None]
